FAERS Safety Report 22010325 (Version 1)
Quarter: 2023Q1

REPORT INFORMATION
  Report Type: Spontaneous
  Country: US (occurrence: None)
  Receive Date: 20230220
  Receipt Date: 20230220
  Transmission Date: 20230417
  Serious: Yes (Other)
  Sender: FDA-Public Use
  Company Number: US-MLMSERVICE-20230210-4086396-1

PATIENT
  Age: 28 Year
  Sex: Male

DRUGS (4)
  1. FENTANYL [Suspect]
     Active Substance: FENTANYL
     Indication: Tachypnoea
     Dosage: CONTINUOUS DRIP
     Route: 041
  2. FENTANYL [Suspect]
     Active Substance: FENTANYL
     Indication: Pain
  3. ESCITALOPRAM [Concomitant]
     Active Substance: ESCITALOPRAM OXALATE
     Indication: Depression
     Dosage: UNKNOWN
     Route: 065
  4. ALPRAZOLAM [Concomitant]
     Active Substance: ALPRAZOLAM
     Indication: Depression
     Dosage: UNKNOWN
     Route: 065

REACTIONS (2)
  - Ileus [Recovered/Resolved]
  - Constipation [Unknown]
